FAERS Safety Report 17898347 (Version 1)
Quarter: 2020Q2

REPORT INFORMATION
  Report Type: Spontaneous
  Country: None (occurrence: GB)
  Receive Date: 20200615
  Receipt Date: 20200615
  Transmission Date: 20200714
  Serious: Yes (Other)
  Sender: FDA-Public Use
  Company Number: GB-SA-2020SA146169

PATIENT

DRUGS (2)
  1. CLOPIDOGREL BISULFATE. [Suspect]
     Active Substance: CLOPIDOGREL BISULFATE
     Indication: CEREBRAL ARTERY OCCLUSION
     Dosage: UNK
     Route: 065
  2. ACETYLSALICYLIC ACID [Suspect]
     Active Substance: ASPIRIN
     Dosage: UNK
     Route: 065

REACTIONS (6)
  - Nervous system disorder [Recovered/Resolved]
  - Ataxia [Recovered/Resolved]
  - Nystagmus [Recovered/Resolved]
  - Condition aggravated [Recovered/Resolved]
  - Temporal arteritis [Recovered/Resolved]
  - Dysarthria [Recovered/Resolved]
